FAERS Safety Report 7415648-X (Version None)
Quarter: 2011Q2

REPORT INFORMATION
  Report Type: 
  Country: None (occurrence: None)
  Receive Date: 20110414
  Receipt Date: 20110408
  Transmission Date: 20111010
  Serious: Yes (Hospitalization)
  Sender: FDA-Public Use
  Company Number: RU-CUBIST-2011S1000238

PATIENT
  Age: 14 Year
  Sex: Male
  Weight: 75 kg

DRUGS (3)
  1. CUBICIN [Suspect]
     Indication: OSTEOMYELITIS
     Route: 042
     Dates: start: 20101008
  2. VANCOMYCIN [Suspect]
     Indication: OSTEOMYELITIS
     Route: 042
     Dates: start: 20100915, end: 20101004
  3. CHEMOTHERAPEUTICS NOS [Concomitant]
     Indication: BONE SARCOMA
     Route: 065

REACTIONS (3)
  - CONCOMITANT DISEASE PROGRESSION [None]
  - RENAL FAILURE ACUTE [None]
  - OSTEOSARCOMA METASTATIC [None]
